FAERS Safety Report 9239158 (Version 1)
Quarter: 2013Q2

REPORT INFORMATION
  Report Type: Spontaneous
  Country: CA (occurrence: CA)
  Receive Date: 20130418
  Receipt Date: 20130418
  Transmission Date: 20140414
  Serious: Yes (Other)
  Sender: FDA-Public Use
  Company Number: CA-NAPPMUNDI-CAN-2013-0004042

PATIENT
  Sex: Female

DRUGS (1)
  1. BUTRANS TRANSDERMAL PATCH [Suspect]
     Indication: PAIN
     Dosage: UNK
     Route: 062

REACTIONS (1)
  - Polyarthritis [Unknown]
